FAERS Safety Report 10805102 (Version 1)
Quarter: 2015Q1

REPORT INFORMATION
  Report Type: Report from Study
  Country: US (occurrence: US)
  Receive Date: 20150217
  Receipt Date: 20150217
  Transmission Date: 20150721
  Serious: No
  Sender: FDA-Public Use
  Company Number: US-ABBVIE-14K-163-1262290-00

PATIENT
  Age: 47 Year
  Sex: Female
  Weight: 49.03 kg

DRUGS (4)
  1. NALTREXONE [Suspect]
     Active Substance: NALTREXONE
     Indication: RHEUMATOID ARTHRITIS
     Route: 048
     Dates: end: 20140704
  2. HUMIRA [Suspect]
     Active Substance: ADALIMUMAB
     Indication: CROHN^S DISEASE
     Dates: end: 20140817
  3. OREGON GRAPE [Concomitant]
     Indication: GASTROINTESTINAL DISORDER
     Dosage: 1 TABLESPOON DAILY
  4. HUMIRA [Suspect]
     Active Substance: ADALIMUMAB
     Indication: RHEUMATOID ARTHRITIS
     Dates: start: 20140706, end: 20140706

REACTIONS (13)
  - Genital herpes [Recovering/Resolving]
  - Injection site erythema [Unknown]
  - Respiratory disorder [Recovering/Resolving]
  - Pain [Unknown]
  - Drug ineffective [Not Recovered/Not Resolved]
  - Rheumatoid arthritis [Unknown]
  - Crohn^s disease [Not Recovered/Not Resolved]
  - Incorrect dose administered [Unknown]
  - Drug ineffective [Unknown]
  - Injection site urticaria [Recovering/Resolving]
  - Diarrhoea [Unknown]
  - Injection site induration [Unknown]
  - Injection site pruritus [Recovered/Resolved]

NARRATIVE: CASE EVENT DATE: 2014
